FAERS Safety Report 7445361-4 (Version None)
Quarter: 2011Q2

REPORT INFORMATION
  Report Type: 
  Country: None (occurrence: None)
  Receive Date: 20110429
  Receipt Date: 20101130
  Transmission Date: 20111010
  Serious: No
  Sender: FDA-Public Use
  Company Number: A0898173A

PATIENT
  Sex: Female

DRUGS (1)
  1. ZOFRAN [Suspect]
     Dosage: 4MG UNKNOWN
     Route: 065
     Dates: start: 20101028, end: 20100101

REACTIONS (1)
  - ILL-DEFINED DISORDER [None]
